FAERS Safety Report 9214153 (Version 1)
Quarter: 2013Q2

REPORT INFORMATION
  Report Type: Spontaneous
  Country: US (occurrence: None)
  Receive Date: 20130404
  Receipt Date: 20130404
  Transmission Date: 20140414
  Serious: No
  Sender: FDA-Public Use
  Company Number: None

PATIENT
  Age: 42 Year
  Sex: Male
  Weight: 67.7 kg

DRUGS (1)
  1. BLEOMYCIN [Suspect]
     Indication: SKIN PAPILLOMA
     Dosage: 0.25 ML  SUBLESIONALLY
     Dates: start: 20130104

REACTIONS (3)
  - Injection site vesicles [None]
  - Injection site haemorrhage [None]
  - Injection site ulcer [None]
